FAERS Safety Report 21006034 (Version 1)
Quarter: 2022Q2

REPORT INFORMATION
  Report Type: Spontaneous
  Country: JP (occurrence: JP)
  Receive Date: 20220624
  Receipt Date: 20220624
  Transmission Date: 20220721
  Serious: Yes (Hospitalization, Other)
  Sender: FDA-Public Use
  Company Number: JP-BAYER-2022A076115

PATIENT
  Age: 68 Year
  Sex: Male

DRUGS (7)
  1. XARELTO [Suspect]
     Active Substance: RIVAROXABAN
     Indication: Atrial fibrillation
     Dosage: 15 MG, QD
     Route: 048
     Dates: start: 20200610, end: 20220515
  2. AMLODIPINE BESYLATE\AZILSARTAN [Concomitant]
     Active Substance: AMLODIPINE BESYLATE\AZILSARTAN
     Indication: Hypertension
     Dosage: 1 DF, QD
  3. CARVEDILOL [Concomitant]
     Active Substance: CARVEDILOL
     Indication: Ventricular extrasystoles
     Dosage: 10 MG, QD
  4. FEBUXOSTAT [Concomitant]
     Active Substance: FEBUXOSTAT
     Indication: Hyperuricaemia
     Dosage: 20 MG, QD
  5. PRAVASTATIN SODIUM [Concomitant]
     Active Substance: PRAVASTATIN SODIUM
     Indication: Dyslipidaemia
     Dosage: 10 MG, QD
  6. DESLORATADINE [Concomitant]
     Active Substance: DESLORATADINE
     Indication: Rhinitis allergic
     Dosage: 5 MG, QD
  7. MONTELUKAST SODIUM [Concomitant]
     Active Substance: MONTELUKAST SODIUM
     Indication: Rhinitis allergic
     Dosage: 10 MG, QD

REACTIONS (3)
  - Cerebral haemorrhage [Recovering/Resolving]
  - Cerebral haemangioma [Unknown]
  - Headache [Recovering/Resolving]

NARRATIVE: CASE EVENT DATE: 20220412
